FAERS Safety Report 8832251 (Version 3)
Quarter: 2012Q4

REPORT INFORMATION
  Report Type: Report from Study
  Country: JP (occurrence: JP)
  Receive Date: 20121009
  Receipt Date: 20121120
  Transmission Date: 20130627
  Serious: Yes (Hospitalization, Other)
  Sender: FDA-Public Use
  Company Number: JP-VERTEX PHARMACEUTICAL INC.-2012-022389

PATIENT
  Age: 48 Year
  Sex: Male

DRUGS (7)
  1. VX-950 (TELAPREVIR) [Suspect]
     Indication: CHRONIC HEPATITIS C
     Dosage: 2250 mg, qd
     Route: 048
     Dates: start: 20120814, end: 20121001
  2. PEGINTRON                          /01543001/ [Suspect]
     Indication: CHRONIC HEPATITIS C
     Dosage: 1.4 ?g/kg, weekly
     Route: 058
     Dates: start: 20120814, end: 20120925
  3. REBETOL [Suspect]
     Indication: CHRONIC HEPATITIS C
     Dosage: 800 mg, qd
     Route: 048
     Dates: start: 20120814, end: 20121001
  4. POKURIHOSU [Concomitant]
     Dosage: 0.9 mg, qd
     Route: 048
  5. ACTOS [Concomitant]
     Dosage: 15 mg, qd
     Route: 048
  6. MYSLEE [Concomitant]
     Dosage: 10 mg, qd
     Route: 048
  7. CLARITH [Concomitant]
     Dosage: 400 DF, qd
     Route: 048
     Dates: start: 20120925, end: 20121001

REACTIONS (3)
  - Nasopharyngitis [Recovered/Resolved]
  - Pyrexia [Recovered/Resolved]
  - Rash [Recovered/Resolved]
